FAERS Safety Report 19974689 (Version 1)
Quarter: 2021Q4

REPORT INFORMATION
  Report Type: Spontaneous
  Country: GR (occurrence: GR)
  Receive Date: 20211020
  Receipt Date: 20211020
  Transmission Date: 20220303
  Serious: Yes (Other)
  Sender: FDA-Public Use
  Company Number: GR-NOVARTISPH-NVSC2021GR236773

PATIENT
  Sex: Female

DRUGS (1)
  1. ANAFRANIL [Suspect]
     Active Substance: CLOMIPRAMINE HYDROCHLORIDE
     Indication: Mental disorder
     Dosage: 3 DF, QD
     Route: 065

REACTIONS (3)
  - Suicide attempt [Unknown]
  - Incorrect dose administered [Unknown]
  - Product availability issue [Unknown]
